FAERS Safety Report 9691376 (Version 2)
Quarter: 2013Q4

REPORT INFORMATION
  Report Type: Spontaneous
  Country: US (occurrence: US)
  Receive Date: 20131115
  Receipt Date: 20131202
  Transmission Date: 20140711
  Serious: No
  Sender: FDA-Public Use
  Company Number: US-009507513-1311USA006431

PATIENT
  Age: 81 Year
  Sex: Male
  Weight: 63.49 kg

DRUGS (4)
  1. CLARITIN [Suspect]
     Indication: SNEEZING
     Dosage: 10 MG, QD
     Route: 048
     Dates: start: 201311, end: 201311
  2. CLARITIN [Suspect]
     Indication: RHINORRHOEA
  3. CLARITIN [Suspect]
     Indication: LACRIMATION INCREASED
  4. CLARITIN [Suspect]
     Indication: EYE PRURITUS

REACTIONS (2)
  - Psychomotor hyperactivity [Recovered/Resolved]
  - Unevaluable event [Recovered/Resolved]
